FAERS Safety Report 9503646 (Version 1)
Quarter: 2013Q3

REPORT INFORMATION
  Report Type: Spontaneous
  Country: IL (occurrence: IL)
  Receive Date: 20130906
  Receipt Date: 20130906
  Transmission Date: 20140515
  Serious: No
  Sender: FDA-Public Use
  Company Number: IL-009507513-1309ISR001903

PATIENT
  Age: 53 Year
  Sex: Male

DRUGS (6)
  1. VICTRELIS [Suspect]
     Indication: HEPATITIS C
     Dosage: UNK
     Route: 048
  2. PEGASYS [Suspect]
     Indication: HEPATITIS C
  3. COPEGUS [Suspect]
     Indication: HEPATITIS C
  4. COUMADIN [Concomitant]
  5. LOTAN [Concomitant]
  6. DISOTHIAZIDE [Concomitant]

REACTIONS (3)
  - Ligament sprain [Not Recovered/Not Resolved]
  - Paraesthesia [Not Recovered/Not Resolved]
  - Asthenia [Not Recovered/Not Resolved]
